FAERS Safety Report 13373112 (Version 1)
Quarter: 2017Q1

REPORT INFORMATION
  Report Type: Spontaneous
  Country: US (occurrence: US)
  Receive Date: 20170324
  Receipt Date: 20170324
  Transmission Date: 20170429
  Serious: Yes (Other)
  Sender: FDA-Public Use
  Company Number: None

PATIENT
  Age: 69 Year
  Sex: Male

DRUGS (1)
  1. IMIQUIMOD. [Suspect]
     Active Substance: IMIQUIMOD
     Indication: ACTINIC KERATOSIS
     Dosage: APPLY 1 PACKET MWF TOPICALLY
     Route: 061
     Dates: start: 20160811, end: 20160916

REACTIONS (4)
  - Instillation site discharge [None]
  - Secretion discharge [None]
  - Instillation site erosion [None]
  - Instillation site scab [None]

NARRATIVE: CASE EVENT DATE: 20160916
